FAERS Safety Report 9354757 (Version 2)
Quarter: 2013Q4

REPORT INFORMATION
  Report Type: Spontaneous
  Country: FI (occurrence: FI)
  Receive Date: 20130619
  Receipt Date: 20131016
  Transmission Date: 20140711
  Serious: Yes (Hospitalization, Other)
  Sender: FDA-Public Use
  Company Number: FI-AMGEN-FINSP2013042652

PATIENT
  Age: 55 Year
  Sex: Female

DRUGS (18)
  1. XGEVA [Suspect]
     Indication: METASTASES TO BONE
     Dosage: 120 MG, Q4WK
     Route: 058
     Dates: start: 201210, end: 20130409
  2. NEULASTA [Suspect]
     Indication: PRODUCT USED FOR UNKNOWN INDICATION
     Dosage: UNK
     Route: 065
     Dates: start: 201012
  3. DOCETAXEL [Concomitant]
     Indication: BREAST CANCER METASTATIC
     Dosage: UNK
     Dates: start: 2010, end: 2013
  4. TAXOTERE [Concomitant]
     Indication: BREAST CANCER METASTATIC
     Dosage: 119 MG, Q3WK
     Route: 042
     Dates: start: 201301, end: 20130409
  5. AMLODIPINE [Concomitant]
     Dosage: 5 MG, UNK
     Route: 048
  6. PERSANTIN [Concomitant]
     Dosage: DEPOT
     Route: 048
  7. SIMVASTATINE [Concomitant]
     Dosage: 20 MG, QD
     Route: 048
  8. PRIMASPAN [Concomitant]
     Dosage: 100 MG, QD
     Route: 048
  9. ENALAPRIL [Concomitant]
     Dosage: 10 MG, UNK
     Route: 048
  10. DUROGESIC [Concomitant]
     Dosage: DEPOPATCH
  11. DIFORMIN [Concomitant]
     Dosage: RETARD, DEPOT
     Route: 048
     Dates: end: 201210
  12. OXYNORM [Concomitant]
     Dosage: 5 MG, QD
  13. AGIOCUR                            /00029101/ [Concomitant]
     Dosage: UNK UNK, BID
  14. SERENASE                           /00027401/ [Concomitant]
     Dosage: 1 MG, UNK
  15. VENLAFAXIN [Concomitant]
     Dosage: 75 MG, QD
  16. FEMAR [Concomitant]
     Dosage: 2.5 MG, QD
     Dates: start: 2011
  17. KALCIPOS-D [Concomitant]
     Dosage: UNK UNK, BID
  18. FASLODEX                           /01503001/ [Concomitant]
     Dosage: UNK
     Dates: start: 201210, end: 201301

REACTIONS (27)
  - Epilepsy [Unknown]
  - Metabolic acidosis [Unknown]
  - Groin abscess [Unknown]
  - Urinary tract infection [Unknown]
  - Oral infection [Unknown]
  - Electrocardiogram QT prolonged [Unknown]
  - Renal impairment [Unknown]
  - Pain [Unknown]
  - Lung infection [Recovered/Resolved]
  - Osteonecrosis of jaw [Unknown]
  - Leukocytosis [Not Recovered/Not Resolved]
  - Constipation [Unknown]
  - Upper-airway cough syndrome [Unknown]
  - Fatigue [Unknown]
  - Vomiting [Unknown]
  - Nausea [Unknown]
  - Rib fracture [Unknown]
  - Hyperhidrosis [Unknown]
  - Headache [Unknown]
  - Cough [Unknown]
  - Diarrhoea [Unknown]
  - Weight decreased [Unknown]
  - Dysuria [Unknown]
  - Gastritis [Unknown]
  - Dysphagia [Unknown]
  - Skin disorder [Unknown]
  - Hypercalcaemia [Unknown]
